FAERS Safety Report 8600270-X (Version None)
Quarter: 2012Q3

REPORT INFORMATION
  Report Type: 
  Country: None (occurrence: None)
  Receive Date: 20120817
  Receipt Date: 20120810
  Transmission Date: 20120928
  Serious: No
  Sender: FDA-Public Use
  Company Number: US-BIOGENIDEC-2012BI031101

PATIENT
  Age: 43 Year
  Sex: Male

DRUGS (2)
  1. TYSABRI [Suspect]
     Indication: MULTIPLE SCLEROSIS
     Route: 042
     Dates: start: 20090604, end: 20100308
  2. TYSABRI [Suspect]
     Route: 042
     Dates: start: 20120213

REACTIONS (4)
  - HYPOAESTHESIA [None]
  - DYSURIA [None]
  - FLANK PAIN [None]
  - TOOTH INFECTION [None]
